FAERS Safety Report 19954477 (Version 1)
Quarter: 2021Q4

REPORT INFORMATION
  Report Type: Spontaneous
  Country: ZA (occurrence: ZA)
  Receive Date: 20211014
  Receipt Date: 20211014
  Transmission Date: 20220303
  Serious: Yes (Death, Hospitalization, Other)
  Sender: FDA-Public Use
  Company Number: ZA-NOVARTISPH-NVSC2021ZA233525

PATIENT
  Sex: Female

DRUGS (1)
  1. ACLASTA [Suspect]
     Active Substance: ZOLEDRONIC ACID
     Indication: Osteoporosis
     Dosage: UNK
     Route: 041
     Dates: start: 2016

REACTIONS (6)
  - Hip fracture [Fatal]
  - Wound sepsis [Fatal]
  - COVID-19 [Fatal]
  - Dysphagia [Fatal]
  - Feeding disorder [Fatal]
  - General physical health deterioration [Fatal]
